FAERS Safety Report 6346429-6 (Version None)
Quarter: 2009Q3

REPORT INFORMATION
  Report Type: 
  Country: None (occurrence: None)
  Receive Date: 20090909
  Receipt Date: 20090908
  Transmission Date: 20100115
  Serious: Yes (Death)
  Sender: FDA-Public Use
  Company Number: GB-WYE-G04352509

PATIENT
  Sex: Male
  Weight: 76 kg

DRUGS (26)
  1. GEMTUZUMAB OZOGAMICIN [Suspect]
     Indication: ACUTE MYELOID LEUKAEMIA
     Dosage: UNKNOWN
     Dates: start: 20080130, end: 20080518
  2. COTRIM [Concomitant]
     Dates: start: 20080714, end: 20080722
  3. COTRIM [Concomitant]
     Dosage: 960 MG ONCE DAILY (MONDAY, WEDNESDAY, FRIDAY)
     Dates: start: 20080820, end: 20090119
  4. ACYCLOVIR [Concomitant]
     Dates: start: 20080714, end: 20090119
  5. ITRACONAZOLE [Concomitant]
     Dates: start: 20080714, end: 20090119
  6. ALLOPURINOL [Concomitant]
     Dates: start: 20080714, end: 20080723
  7. CIPROFLAXACIN [Concomitant]
     Dates: start: 20080714
  8. METRONIDAZOLE [Concomitant]
     Dates: start: 20080714
  9. ONDANSETRON [Concomitant]
     Dosage: UNKNOWN
     Dates: start: 20080715
  10. METHYLPREDNISOLONE [Concomitant]
     Dosage: 125 MG EVERY 1 TOT
     Dates: start: 20080715
  11. CAMPATH [Concomitant]
     Route: 042
     Dates: start: 20080715
  12. FLUDARABINE PHOSPHATE [Concomitant]
     Dates: start: 20080716
  13. MELPHALAN HYDROCHLORIDE [Concomitant]
     Dosage: 270 MG OVER 30 MINUTES (FREQUENCY UNKNOWN)
     Dates: start: 20080721
  14. DEXAMETHASONE [Concomitant]
     Dosage: UNKNOWN
     Dates: start: 20080721
  15. CYCLOSPORINE [Concomitant]
     Indication: PROPHYLAXIS
     Route: 042
     Dates: start: 20080722
  16. CYCLOSPORINE [Concomitant]
  17. AMOXICILLIN [Concomitant]
     Indication: INFECTION PROPHYLAXIS
     Dates: start: 20080701
  18. DOMPERIDONE [Concomitant]
     Dosage: 20 MG EVERY 1 PRN
  19. CO-CODAMOL [Concomitant]
     Dosage: 3500 PRN
  20. MAGNESIUM GLYCEROPHOSPHATE [Concomitant]
  21. SLOW-K [Concomitant]
  22. ADCAL D3 [Concomitant]
  23. ALENDRONIC ACID [Concomitant]
  24. OMEPRAZOLE [Concomitant]
  25. AMLODIPINE [Concomitant]
  26. DAUNORUBICIN HCL [Concomitant]
     Dosage: UNKNOWN
     Dates: start: 20080130, end: 20080518

REACTIONS (1)
  - GRAFT VERSUS HOST DISEASE [None]
